FAERS Safety Report 15269887 (Version 2)
Quarter: 2018Q3

REPORT INFORMATION
  Report Type: Report from Study
  Country: IN (occurrence: IN)
  Receive Date: 20180813
  Receipt Date: 20180910
  Transmission Date: 20181010
  Serious: Yes (Other)
  Sender: FDA-Public Use
  Company Number: IN-MYLANLABS-2018M1060351

PATIENT

DRUGS (4)
  1. TEMOZOLOMIDE. [Suspect]
     Active Substance: TEMOZOLOMIDE
     Indication: MEDULLOBLASTOMA
     Dosage: ADMINISTERED IN 12?WEEKLY CYCLES
     Route: 048
  2. VALPROIC ACID. [Suspect]
     Active Substance: VALPROIC ACID
     Indication: MEDULLOBLASTOMA
     Dosage: ADMINISTERED IN 12?WEEKLY CYCLES
     Route: 048
  3. ISOTRETINOIN. [Suspect]
     Active Substance: ISOTRETINOIN
     Indication: MEDULLOBLASTOMA
     Dosage: ADMINISTERED IN 12?WEEKLY CYCLES
     Route: 048
  4. ETOPOSIDE. [Suspect]
     Active Substance: ETOPOSIDE
     Indication: MEDULLOBLASTOMA
     Dosage: ADMINISTERED IN 12?WEEKLY CYCLES
     Route: 048

REACTIONS (1)
  - Acute myeloid leukaemia [Unknown]
